FAERS Safety Report 5969388-4 (Version None)
Quarter: 2008Q4

REPORT INFORMATION
  Report Type: 
  Country: None (occurrence: None)
  Receive Date: 20081126
  Receipt Date: 20081118
  Transmission Date: 20090506
  Serious: Yes (Death)
  Sender: FDA-Public Use
  Company Number: GB-JNJFOC-20081104698

PATIENT

DRUGS (4)
  1. REMICADE [Suspect]
     Indication: DRUG EXPOSURE DURING PREGNANCY
  2. HYDROCORTISONE [Concomitant]
     Indication: DRUG EXPOSURE DURING PREGNANCY
  3. MESALAMINE [Concomitant]
     Indication: DRUG EXPOSURE DURING PREGNANCY
  4. PREDNISOLONE [Concomitant]
     Indication: DRUG EXPOSURE DURING PREGNANCY

REACTIONS (2)
  - DRUG EXPOSURE DURING PREGNANCY [None]
  - INTRA-UTERINE DEATH [None]
